FAERS Safety Report 7803380-X (Version None)
Quarter: 2011Q4

REPORT INFORMATION
  Report Type: 
  Country: None (occurrence: None)
  Receive Date: 20111007
  Receipt Date: 20110930
  Transmission Date: 20120403
  Serious: Yes (Other)
  Sender: FDA-Public Use
  Company Number: CN-ASTRAZENECA-2011SE58940

PATIENT
  Sex: Female

DRUGS (5)
  1. LIDOCAINE [Suspect]
     Indication: ANAESTHESIA
  2. FENTANYL [Suspect]
     Indication: ANAESTHESIA
     Route: 042
  3. PROPOFOL [Suspect]
     Indication: ANAESTHESIA
     Dosage: 2-2.5MG/KG
     Route: 042
  4. ATROPINE [Suspect]
     Indication: ANAESTHESIA
     Route: 042
  5. KETAMINE HCL [Suspect]
     Indication: ANAESTHESIA
     Route: 042

REACTIONS (5)
  - RESPIRATORY DEPRESSION [None]
  - AGITATION [None]
  - UNWANTED AWARENESS DURING ANAESTHESIA [None]
  - VOMITING [None]
  - NAUSEA [None]
